FAERS Safety Report 8019971-X (Version None)
Quarter: 2012Q1

REPORT INFORMATION
  Report Type: 
  Country: None (occurrence: None)
  Receive Date: 20120103
  Receipt Date: 20111227
  Transmission Date: 20120608
  Serious: Yes (Death)
  Sender: FDA-Public Use
  Company Number: US-JNJFOC-20111212135

PATIENT
  Age: 27 Year
  Sex: Female

DRUGS (5)
  1. ALPRAZOLAM [Suspect]
     Indication: SUICIDE ATTEMPT
     Route: 048
  2. METFORMIN HCL [Suspect]
     Indication: SUICIDE ATTEMPT
     Route: 048
  3. RISPERIDONE [Suspect]
     Indication: SUICIDE ATTEMPT
     Route: 048
  4. BENZTROPINE MESYLATE [Suspect]
     Indication: SUICIDE ATTEMPT
     Route: 048
  5. ETHANOL [Suspect]
     Indication: SUICIDE ATTEMPT
     Route: 048

REACTIONS (1)
  - TOXICITY TO VARIOUS AGENTS [None]
